FAERS Safety Report 5732594-8 (Version None)
Quarter: 2008Q2

REPORT INFORMATION
  Report Type: 
  Country: None (occurrence: None)
  Receive Date: 20080507
  Receipt Date: 20080421
  Transmission Date: 20081010
  Serious: Yes (Other)
  Sender: FDA-Public Use
  Company Number: 002#1#2008-00020

PATIENT
  Age: 33 Year
  Sex: Female

DRUGS (9)
  1. NEUPRO [Suspect]
     Indication: DEPRESSION
     Dosage: 4MG/24H,1 IN 1 D, TRANSDERMAL : 4MG/24H,1 IN 1 D,TRANSDERMAL
     Route: 062
     Dates: start: 20070115, end: 20070116
  2. NEUPRO [Suspect]
     Indication: RESTLESS LEGS SYNDROME
     Dosage: 4MG/24H,1 IN 1 D, TRANSDERMAL : 4MG/24H,1 IN 1 D,TRANSDERMAL
     Route: 062
     Dates: start: 20070115, end: 20070116
  3. NEUPRO [Suspect]
     Indication: DEPRESSION
     Dosage: 4MG/24H,1 IN 1 D, TRANSDERMAL : 4MG/24H,1 IN 1 D,TRANSDERMAL
     Route: 062
     Dates: start: 20071217, end: 20071231
  4. NEUPRO [Suspect]
     Indication: RESTLESS LEGS SYNDROME
     Dosage: 4MG/24H,1 IN 1 D, TRANSDERMAL : 4MG/24H,1 IN 1 D,TRANSDERMAL
     Route: 062
     Dates: start: 20071217, end: 20071231
  5. AMBIEN CR [Concomitant]
  6. SEROQUEL [Concomitant]
  7. CLONAZEPAM [Concomitant]
  8. REQUIP [Concomitant]
  9. MIRAPEX [Concomitant]

REACTIONS (4)
  - DRUG INEFFECTIVE [None]
  - PHARMACEUTICAL PRODUCT COMPLAINT [None]
  - SELF INJURIOUS BEHAVIOUR [None]
  - SUICIDAL IDEATION [None]
